FAERS Safety Report 10264853 (Version 1)
Quarter: 2014Q2

REPORT INFORMATION
  Report Type: Spontaneous
  Country: US (occurrence: None)
  Receive Date: 20140530
  Receipt Date: 20140530
  Transmission Date: 20141212
  Serious: Yes (Other)
  Sender: FDA-Public Use
  Company Number: 2013036039

PATIENT
  Age: 2 Year
  Sex: Male
  Weight: 15.88 kg

DRUGS (14)
  1. HIZENTRA (IMMUNOGLOBULIN HUMAN NORMAL) [Suspect]
     Indication: HYPOGAMMAGLOBULINAEMIA
     Dosage: 1X/WEEK, ??-APR-2013; 1-2 SITES OVER 0.5-1.5 HOURS SUBCUTANEOUS)
     Route: 058
     Dates: end: 201304
  2. CHILDREN^S TYLENOL (PARACETAMOL) [Concomitant]
  3. CHILDREN^S MOTIN (IBUPROFEN) [Concomitant]
  4. MULTIVITAMIN (DAILY MULTIVITAMIN) [Concomitant]
  5. DIPHENHYDRAMINE [Concomitant]
  6. LIDOCAINE/PRILOCAINE (EMLA /00675501/) [Concomitant]
  7. EPI-PEN JR (EPINEPHRINE HYDROCHLORIDE) [Concomitant]
  8. SINGULAIR (MONTELUKAST) [Concomitant]
  9. PREDNISONE [Concomitant]
  10. ZANTAC (RANITIDINE HYDROCHLORIDE) [Concomitant]
  11. ZYRTEC (CETIRIZINE HYDROCHLORIDE) [Concomitant]
  12. SEPTRA DS (BACTRIM /00086101/) [Concomitant]
  13. VIGAMOX (MOXIFLOXACIN HYDROCHLORIDE) [Concomitant]
  14. CIPRO (CIPROFLOXACIN LACTATE) [Concomitant]

REACTIONS (1)
  - Anaphylactic reaction [None]
